FAERS Safety Report 7443197-1 (Version None)
Quarter: 2011Q2

REPORT INFORMATION
  Report Type: 
  Country: None (occurrence: None)
  Receive Date: 20110428
  Receipt Date: 20110420
  Transmission Date: 20111010
  Serious: Yes (Other)
  Sender: FDA-Public Use
  Company Number: B0702244A

PATIENT
  Sex: Male
  Weight: 72.3 kg

DRUGS (3)
  1. MELPHALAN [Suspect]
     Indication: MULTIPLE MYELOMA
     Dosage: .18MGK CYCLIC
     Route: 048
     Dates: start: 20070625, end: 20080205
  2. PREDNISONE [Suspect]
     Indication: MULTIPLE MYELOMA
     Dosage: 2MGK CYCLIC
     Route: 048
     Dates: start: 20070625, end: 20080205
  3. LENALIDOMIDE [Suspect]
     Indication: MULTIPLE MYELOMA
     Route: 048
     Dates: start: 20070625, end: 20100610

REACTIONS (1)
  - TRANSITIONAL CELL CARCINOMA [None]
